FAERS Safety Report 14299357 (Version 1)
Quarter: 2017Q4

REPORT INFORMATION
  Report Type: Spontaneous
  Country: US (occurrence: US)
  Receive Date: 20171219
  Receipt Date: 20171219
  Transmission Date: 20180321
  Serious: No
  Sender: FDA-Public Use
  Company Number: US-B.I. PHARMACEUTICALS,INC./RIDGEFIELD-2017-BI-066301

PATIENT
  Sex: Male

DRUGS (1)
  1. COMBIVENT [Suspect]
     Active Substance: ALBUTEROL SULFATE\IPRATROPIUM BROMIDE
     Indication: PRODUCT USED FOR UNKNOWN INDICATION
     Dosage: UNK;  FORM STRENGTH: 20 MCG / 100 MCG; FOR: INHALATION SPRAY  ACTIO TAKEN WITH PRODUCT: NOT REPORTED
     Route: 055

REACTIONS (3)
  - Dyspnoea exertional [Unknown]
  - Neuropathy peripheral [Unknown]
  - Unevaluable event [Unknown]
